FAERS Safety Report 4313465-0 (Version None)
Quarter: 2004Q1

REPORT INFORMATION
  Report Type: 
  Country: None (occurrence: None)
  Receive Date: 20040304
  Receipt Date: 20040217
  Transmission Date: 20041129
  Serious: Yes (Hospitalization)
  Sender: FDA-Public Use
  Company Number: USA040259654

PATIENT
  Age: 48 Year
  Sex: Male

DRUGS (1)
  1. HUMULIN 70/30 [Suspect]
     Indication: DIABETES MELLITUS NON-INSULIN-DEPENDENT
     Dosage: 30 U/2DAY
     Dates: start: 20020101

REACTIONS (3)
  - ANGIOPATHY [None]
  - ARTERIAL INJURY [None]
  - CRUSH INJURY [None]
